FAERS Safety Report 5142315-8 (Version None)
Quarter: 2006Q4

REPORT INFORMATION
  Report Type: 
  Country: None (occurrence: None)
  Receive Date: 20061102
  Receipt Date: 20061022
  Transmission Date: 20070319
  Serious: Yes (Other)
  Sender: FDA-Public Use
  Company Number: PHBS2006IL16485

PATIENT
  Age: 28 Year
  Sex: Male
  Weight: 90 kg

DRUGS (1)
  1. LEPONEX [Suspect]
     Indication: SCHIZOPHRENIA
     Dosage: 400 MG/D
     Route: 048
     Dates: start: 19970101

REACTIONS (4)
  - AZOOSPERMIA [None]
  - SEMEN VOLUME DECREASED [None]
  - SPERMATOZOA PROGRESSIVE MOTILITY ABNORMAL [None]
  - TERATOSPERMIA [None]
